FAERS Safety Report 24411250 (Version 3)
Quarter: 2025Q1

REPORT INFORMATION
  Report Type: Report from Study
  Country: US (occurrence: US)
  Receive Date: 20241008
  Receipt Date: 20250114
  Transmission Date: 20250409
  Serious: No
  Sender: LUNDBECK
  Company Number: US-LUNDBECK-DKLU4004587

PATIENT

DRUGS (6)
  1. VYEPTI [Suspect]
     Active Substance: EPTINEZUMAB-JJMR
     Indication: Migraine
     Route: 041
     Dates: start: 20240101, end: 202406
  2. ERENUMAB [Concomitant]
     Active Substance: ERENUMAB
     Indication: Migraine
  3. FREMANEZUMAB [Concomitant]
     Active Substance: FREMANEZUMAB
     Indication: Migraine
  4. GALCANEZUMAB [Concomitant]
     Active Substance: GALCANEZUMAB
     Indication: Migraine
  5. RIMEGEPANT [Concomitant]
     Active Substance: RIMEGEPANT
     Indication: Migraine
  6. QULIPTA [Concomitant]
     Active Substance: ATOGEPANT
     Indication: Migraine

REACTIONS (1)
  - Drug ineffective [Unknown]
